FAERS Safety Report 10131933 (Version 1)
Quarter: 2014Q2

REPORT INFORMATION
  Report Type: Other
  Country: None (occurrence: US)
  Receive Date: 20140428
  Receipt Date: 20140428
  Transmission Date: 20141212
  Serious: Yes (Other)
  Sender: FDA-Public Use
  Company Number: US-GSKPPD-2014GSK033120

PATIENT
  Sex: 0

DRUGS (1)
  1. AVANDIA [Suspect]
     Indication: DIABETES MELLITUS
     Route: 048

REACTIONS (7)
  - Acute myocardial infarction [None]
  - Pulmonary oedema [None]
  - Hypertension [None]
  - Diabetes mellitus [None]
  - Hyperlipidaemia [None]
  - Atrial fibrillation [None]
  - Cardiac failure congestive [None]
